FAERS Safety Report 9289220 (Version 1)
Quarter: 2013Q2

REPORT INFORMATION
  Report Type: Spontaneous
  Country: US (occurrence: US)
  Receive Date: 20130514
  Receipt Date: 20130514
  Transmission Date: 20140414
  Serious: No
  Sender: FDA-Public Use
  Company Number: US-GLAXOSMITHKLINE-A1016345A

PATIENT
  Sex: Female

DRUGS (2)
  1. VELTIN [Suspect]
     Route: 061
     Dates: start: 20130313
  2. NO CONCURRENT MEDICATION [Concomitant]

REACTIONS (5)
  - Skin discolouration [Unknown]
  - Acne [Unknown]
  - Dry skin [Unknown]
  - Pruritus [Unknown]
  - Skin exfoliation [Unknown]
